FAERS Safety Report 24807566 (Version 1)
Quarter: 2025Q1

REPORT INFORMATION
  Report Type: Spontaneous
  Country: IN (occurrence: IN)
  Receive Date: 20250105
  Receipt Date: 20250105
  Transmission Date: 20250409
  Serious: Yes (Death, Other)
  Sender: DR REDDYS
  Company Number: None

PATIENT
  Age: 67 Year
  Sex: Male

DRUGS (17)
  1. GEMCITABINE [Suspect]
     Active Substance: GEMCITABINE
     Indication: Renal cell carcinoma
     Dosage: GEMCITABINE1,000 MG/M2 IN 250ML NORMAL SALINE OVER 30MINUTES
     Dates: start: 2023
  2. GEMCITABINE [Suspect]
     Active Substance: GEMCITABINE
     Indication: Metastases to lung
  3. GEMCITABINE [Suspect]
     Active Substance: GEMCITABINE
     Indication: Metastases to bone
  4. GEMCITABINE [Suspect]
     Active Substance: GEMCITABINE
     Indication: Metastases to pleura
  5. GEMCITABINE [Suspect]
     Active Substance: GEMCITABINE
     Indication: Metastases to lymph nodes
  6. PACLITAXEL [Suspect]
     Active Substance: PACLITAXEL
     Indication: Renal cell carcinoma
     Dosage: SINGLE-AGENT NAB PACLITAXEL 125MG /M2 INTRAVENOUSLY ON DAY 1 DAY 8, AND DAY 15 EVERY 28 DAYS
     Route: 042
     Dates: start: 2023
  7. CARBOPLATIN [Suspect]
     Active Substance: CARBOPLATIN
     Indication: Renal cell carcinoma
     Dosage: AREA UNDER THE CURVE (AUC) 5 INTRAVENOUS INFUSION IN 500 ML NORMAL SALINE OVER 30 MINUTES, 5 CYCLES
     Route: 042
     Dates: start: 2023
  8. CARBOPLATIN [Suspect]
     Active Substance: CARBOPLATIN
     Indication: Metastases to lung
  9. CARBOPLATIN [Suspect]
     Active Substance: CARBOPLATIN
     Indication: Metastases to bone
  10. CARBOPLATIN [Suspect]
     Active Substance: CARBOPLATIN
     Indication: Metastases to pleura
  11. CARBOPLATIN [Suspect]
     Active Substance: CARBOPLATIN
     Indication: Metastases to lymph nodes
  12. DOXORUBICIN [Suspect]
     Active Substance: DOXORUBICIN
     Indication: Renal cell carcinoma
     Dosage: 60MG/M2 IV PUSH EVERY 3WEEKSWITH ERYTHROPOIETIN SUPPORT
     Route: 042
     Dates: start: 2023
  13. DOXORUBICIN [Suspect]
     Active Substance: DOXORUBICIN
     Dosage: CARBOPLATIN AUC5 INTRAVENOUS INFUSION IN 500ML NORMAL SALINE OVER 30MINUTES AND GEMCITABINE 1,000 MG
     Dates: start: 2023
  14. SUNITINIB [Suspect]
     Active Substance: SUNITINIB
     Indication: Renal cell carcinoma
     Dosage: 60MG/M2 IV PUSH EVERY 3WEEKSWITH ERYTHROPOIETIN SUPPORT
     Route: 042
     Dates: start: 2023
  15. SUNITINIB [Suspect]
     Active Substance: SUNITINIB
     Dosage: CARBOPLATIN AUC5 INTRAVENOUS INFUSION IN 500ML NORMAL SALINE OVER 30MINUTES AND GEMCITABINE 1,000 MG
     Dates: start: 2023
  16. SODIUM CHLORIDE [Concomitant]
     Active Substance: SODIUM CHLORIDE
     Indication: Product used for unknown indication
     Dosage: CARBOPLATIN AUC5 INTRAVENOUS INFUSION IN 500ML NORMAL SALINE OVER 30MINUTES AND GEMCITABINE 1,000 MG
     Route: 042
     Dates: start: 2023
  17. SODIUM CHLORIDE [Concomitant]
     Active Substance: SODIUM CHLORIDE
     Dosage: CARBOPLATIN AUC5 INTRAVENOUS INFUSION IN 500ML NORMAL SALINE OVER 30MINUTES AND GEMCITABINE 1,000 MG
     Dates: start: 2023

REACTIONS (7)
  - Dyspnoea [Fatal]
  - Malignant neoplasm progression [Fatal]
  - Drug ineffective for unapproved indication [Fatal]
  - Renal impairment [Recovering/Resolving]
  - Oliguria [Recovering/Resolving]
  - Anaemia [Recovering/Resolving]
  - Urinary tract infection [Recovering/Resolving]

NARRATIVE: CASE EVENT DATE: 20240801
